FAERS Safety Report 9521429 (Version 3)
Quarter: 2014Q2

REPORT INFORMATION
  Report Type: Spontaneous
  Country: US (occurrence: US)
  Receive Date: 20130913
  Receipt Date: 20140505
  Transmission Date: 20141212
  Serious: Yes (Other)
  Sender: FDA-Public Use
  Company Number: US-PERRIGO-13US009113

PATIENT
  Age: 17 Year
  Sex: Male
  Weight: 77.98 kg

DRUGS (2)
  1. LORATADINE 10 MG 612 [Suspect]
     Indication: HYPERSENSITIVITY
     Dosage: 10 MG, ONCE
     Route: 048
     Dates: start: 20130205, end: 20130205
  2. LORATADINE 10 MG 612 [Suspect]
     Dosage: 10 MG, ONCE
     Route: 048
     Dates: start: 20130328, end: 20130328

REACTIONS (1)
  - Convulsion [Recovered/Resolved]
